FAERS Safety Report 25742865 (Version 1)
Quarter: 2025Q3

REPORT INFORMATION
  Report Type: Other
  Country: RU (occurrence: RU)
  Receive Date: 20250830
  Receipt Date: 20250830
  Transmission Date: 20251021
  Serious: Yes (Other)
  Sender: GLENMARK
  Company Number: RU-GLENMARK PHARMACEUTICALS-2025GMK103323

PATIENT
  Age: 81 Year
  Sex: Female
  Weight: 74 kg

DRUGS (6)
  1. LEVOFLOXACIN [Suspect]
     Active Substance: LEVOFLOXACIN
     Indication: Pulmonary tuberculosis
     Route: 048
     Dates: start: 20250708, end: 20250811
  2. LINEZOLID [Suspect]
     Active Substance: LINEZOLID
     Indication: Pulmonary tuberculosis
     Dosage: 300 MILLIGRAM, OD
     Route: 048
     Dates: start: 20250708, end: 20250811
  3. LINEZOLID [Suspect]
     Active Substance: LINEZOLID
     Indication: Pulmonary tuberculosis
     Dosage: 200 MILLIGRAM, OD
     Route: 048
     Dates: start: 20250708, end: 20250811
  4. DELAMANID [Suspect]
     Active Substance: DELAMANID
     Indication: Pulmonary tuberculosis
     Dosage: 200 MILLIGRAM, OD
     Route: 048
     Dates: start: 20250711, end: 20250811
  5. BEDAQUILINE [Concomitant]
     Active Substance: BEDAQUILINE
     Indication: Pulmonary tuberculosis
     Route: 048
     Dates: start: 20250708, end: 20250811
  6. TERIZIDONE [Concomitant]
     Active Substance: TERIZIDONE
     Indication: Pulmonary tuberculosis
     Route: 048
     Dates: start: 20250708, end: 20250811

REACTIONS (4)
  - Blood urea increased [Not Recovered/Not Resolved]
  - Blood creatinine increased [Not Recovered/Not Resolved]
  - Haemoglobin decreased [Recovering/Resolving]
  - Dizziness [Not Recovered/Not Resolved]

NARRATIVE: CASE EVENT DATE: 20250808
